FAERS Safety Report 17275543 (Version 1)
Quarter: 2020Q1

REPORT INFORMATION
  Report Type: Spontaneous
  Country: US (occurrence: US)
  Receive Date: 20200116
  Receipt Date: 20200116
  Transmission Date: 20200409
  Serious: No
  Sender: FDA-Public Use
  Company Number: US-BEH-2020111381

PATIENT

DRUGS (1)
  1. PRIVIGEN [Suspect]
     Active Substance: HUMAN IMMUNOGLOBULIN G
     Indication: IMMUNE THROMBOCYTOPENIC PURPURA
     Dosage: 8 MILLIGRAM/KILOGRAM
     Route: 065

REACTIONS (2)
  - Incorrect drug administration rate [Unknown]
  - No adverse event [Unknown]

NARRATIVE: CASE EVENT DATE: 20200102
